FAERS Safety Report 4983296-7 (Version None)
Quarter: 2006Q2

REPORT INFORMATION
  Report Type: 
  Country: None (occurrence: None)
  Receive Date: 20060426
  Receipt Date: 20050607
  Transmission Date: 20061013
  Serious: Yes (Hospitalization, Disabling)
  Sender: FDA-Public Use
  Company Number: US-MERCK-0506USA01128

PATIENT
  Age: 54 Year
  Sex: Male
  Weight: 64 kg

DRUGS (4)
  1. VIOXX [Suspect]
     Indication: RHEUMATOID ARTHRITIS
     Route: 048
     Dates: start: 20000214, end: 20000602
  2. VIOXX [Suspect]
     Route: 048
     Dates: start: 20000901, end: 20040501
  3. VIOXX [Suspect]
     Route: 048
     Dates: start: 20040513, end: 20040929
  4. TYLENOL (CAPLET) [Concomitant]
     Route: 065

REACTIONS (6)
  - ANEURYSM [None]
  - CEREBRAL HAEMORRHAGE [None]
  - CEREBROVASCULAR ACCIDENT [None]
  - FALL [None]
  - HEMIANOPIA HOMONYMOUS [None]
  - VISUAL FIELD DEFECT [None]
